FAERS Safety Report 8169144-5 (Version None)
Quarter: 2012Q1

REPORT INFORMATION
  Report Type: 
  Country: None (occurrence: None)
  Receive Date: 20120227
  Receipt Date: 20120214
  Transmission Date: 20120608
  Serious: Yes (Hospitalization)
  Sender: FDA-Public Use
  Company Number: US-ROCHE-1039067

PATIENT
  Sex: Female
  Weight: 76.726 kg

DRUGS (11)
  1. ACTEMRA [Suspect]
     Indication: RHEUMATOID ARTHRITIS
     Route: 042
     Dates: start: 20120202, end: 20120202
  2. FOLIC ACID [Concomitant]
     Route: 048
  3. LIPITOR [Concomitant]
     Route: 048
  4. PROTONIX [Concomitant]
     Route: 048
  5. LISINOPRIL [Concomitant]
     Route: 048
  6. COUMARIN [Concomitant]
  7. FERROUS SULFATE TAB [Concomitant]
     Route: 048
  8. ZOLOFT [Concomitant]
     Route: 048
  9. COUMADIN [Concomitant]
  10. MAGNESIUM OXIDE [Concomitant]
     Route: 048
  11. PREDNISOLONE [Concomitant]
     Dosage: 2DF ORAL IN MORNING
     Route: 048

REACTIONS (1)
  - GASTROINTESTINAL HAEMORRHAGE [None]
